FAERS Safety Report 8418296-8 (Version None)
Quarter: 2012Q2

REPORT INFORMATION
  Report Type: 
  Country: None (occurrence: None)
  Receive Date: 20120607
  Receipt Date: 20120525
  Transmission Date: 20120825
  Serious: Yes (Other)
  Sender: FDA-Public Use
  Company Number: JP-UCBSA-057168

PATIENT
  Age: 82 Year
  Sex: Female

DRUGS (5)
  1. WARFARIN SODIUM [Concomitant]
     Route: 048
     Dates: start: 20120101
  2. WARFARIN SODIUM [Concomitant]
     Indication: ATRIAL FIBRILLATION
     Route: 048
     Dates: start: 20120411
  3. ZOLPIDEM [Concomitant]
     Indication: INSOMNIA
     Route: 048
     Dates: start: 20120425, end: 20120509
  4. XYZAL [Suspect]
     Indication: PRURITUS
     Route: 048
     Dates: start: 20120413, end: 20120509
  5. ESTAZOLAM [Concomitant]
     Indication: INSOMNIA
     Route: 048
     Dates: start: 20120425, end: 20120509

REACTIONS (2)
  - INTERNATIONAL NORMALISED RATIO INCREASED [None]
  - HAEMORRHAGIC DIATHESIS [None]
